FAERS Safety Report 10455322 (Version 4)
Quarter: 2015Q2

REPORT INFORMATION
  Report Type: Report from Study
  Country: US (occurrence: US)
  Receive Date: 20140916
  Receipt Date: 20150528
  Transmission Date: 20150821
  Serious: Yes (Hospitalization)
  Sender: FDA-Public Use
  Company Number: US-BIOGENIDEC-2014BI094421

PATIENT
  Age: 38 Year
  Sex: Female

DRUGS (4)
  1. TECFIDERA [Suspect]
     Active Substance: DIMETHYL FUMARATE
     Indication: MULTIPLE SCLEROSIS
     Route: 048
     Dates: start: 201304, end: 201305
  2. TECFIDERA [Suspect]
     Active Substance: DIMETHYL FUMARATE
     Indication: MULTIPLE SCLEROSIS
     Route: 048
     Dates: start: 201305, end: 2013
  3. TECFIDERA [Suspect]
     Active Substance: DIMETHYL FUMARATE
     Indication: MULTIPLE SCLEROSIS
     Route: 048
     Dates: start: 20130606, end: 20130613
  4. TECFIDERA [Suspect]
     Active Substance: DIMETHYL FUMARATE
     Indication: MULTIPLE SCLEROSIS
     Route: 048
     Dates: start: 20130614, end: 201408

REACTIONS (16)
  - Multiple sclerosis relapse [Not Recovered/Not Resolved]
  - Lower limb fracture [Unknown]
  - Fall [Recovered/Resolved]
  - Poor quality sleep [Not Recovered/Not Resolved]
  - Foot fracture [Unknown]
  - Alopecia [Recovered/Resolved]
  - Joint dislocation [Unknown]
  - Concussion [Unknown]
  - Diarrhoea [Recovered/Resolved]
  - Multiple sclerosis [Unknown]
  - Hypoaesthesia [Unknown]
  - Gastrointestinal disorder [Recovered/Resolved]
  - Nausea [Recovered/Resolved]
  - Gastric bypass [Recovered/Resolved]
  - Faecal incontinence [Not Recovered/Not Resolved]
  - Infusion site haemorrhage [Recovered/Resolved]

NARRATIVE: CASE EVENT DATE: 201304
